FAERS Safety Report 6138504-6 (Version None)
Quarter: 2009Q1

REPORT INFORMATION
  Report Type: 
  Country: None (occurrence: None)
  Receive Date: 20090327
  Receipt Date: 20090327
  Transmission Date: 20090719
  Serious: Yes (Death, Hospitalization)
  Sender: FDA-Public Use
  Company Number: None

PATIENT
  Sex: Female
  Weight: 97.5234 kg

DRUGS (2)
  1. SORAFENIB [Suspect]
     Indication: PANCREATIC CARCINOMA
     Dosage: 400 MG PO BID
     Route: 048
     Dates: start: 20090114, end: 20090222
  2. ERLOTINIB [Suspect]
     Indication: PANCREATIC CARCINOMA
     Dosage: 150 MG PO DAILY
     Route: 048
     Dates: start: 20090114, end: 20090222

REACTIONS (6)
  - ASCITES [None]
  - DEPRESSION [None]
  - DYSPNOEA [None]
  - NAUSEA [None]
  - PAIN [None]
  - VOMITING [None]
